FAERS Safety Report 5625021-2 (Version None)
Quarter: 2008Q1

REPORT INFORMATION
  Report Type: 
  Country: None (occurrence: None)
  Receive Date: 20080213
  Receipt Date: 20080201
  Transmission Date: 20080703
  Serious: Yes (Hospitalization, Other)
  Sender: FDA-Public Use
  Company Number: US-PFIZER INC-2007104092

PATIENT
  Sex: Female
  Weight: 63.5 kg

DRUGS (6)
  1. CHANTIX [Suspect]
     Indication: SMOKING CESSATION THERAPY
     Route: 048
  2. CYMBALTA [Concomitant]
  3. XANAX [Concomitant]
  4. LYRICA [Concomitant]
     Indication: PAIN
  5. NORTRIPTYLINE HCL [Concomitant]
  6. ENTOCORT EC [Concomitant]

REACTIONS (5)
  - ARTHRITIS [None]
  - MEDICATION ERROR [None]
  - NICOTINE DEPENDENCE [None]
  - SURGERY [None]
  - WEIGHT INCREASED [None]
